FAERS Safety Report 7343821-8 (Version None)
Quarter: 2011Q1

REPORT INFORMATION
  Report Type: 
  Country: None (occurrence: None)
  Receive Date: 20110310
  Receipt Date: 20110307
  Transmission Date: 20110831
  Serious: Yes (Other)
  Sender: FDA-Public Use
  Company Number: US-PFIZER INC-2010153424

PATIENT
  Sex: Female

DRUGS (1)
  1. CHANTIX [Suspect]
     Indication: SMOKING CESSATION THERAPY
     Dosage: STARTER PACK, 1MG
     Route: 048
     Dates: start: 20071222, end: 20080214

REACTIONS (7)
  - ANXIETY [None]
  - DEPRESSION [None]
  - PHYSICAL ASSAULT [None]
  - AGGRESSION [None]
  - PSYCHOTIC DISORDER [None]
  - SUICIDAL IDEATION [None]
  - POST-TRAUMATIC STRESS DISORDER [None]
